FAERS Safety Report 15711677 (Version 2)
Quarter: 2019Q2

REPORT INFORMATION
  Report Type: Spontaneous
  Country: US (occurrence: US)
  Receive Date: 20181212
  Receipt Date: 20190516
  Transmission Date: 20190711
  Serious: Yes (Other)
  Sender: FDA-Public Use
  Company Number: US-SUN PHARMACEUTICAL INDUSTRIES LTD-2018R1-193308

PATIENT
  Age: 61 Year
  Sex: Male

DRUGS (4)
  1. TRASTUZUMAB. [Suspect]
     Active Substance: TRASTUZUMAB
     Indication: BLADDER TRANSITIONAL CELL CARCINOMA
     Dosage: 4 MG/KG LOADING DOSE, THEN 2 MG/KG EVERY 21 DAYS
     Route: 065
  2. GEMCITABINE [Suspect]
     Active Substance: GEMCITABINE\GEMCITABINE HYDROCHLORIDE
     Indication: BLADDER TRANSITIONAL CELL CARCINOMA
     Dosage: 800 MG/M^2 DAYS 1,8 EVERY 21 DAYS
     Route: 065
  3. PACLITAXEL. [Suspect]
     Active Substance: PACLITAXEL
     Indication: BLADDER TRANSITIONAL CELL CARCINOMA
     Dosage: 200 MG/M^2 DAY 1 EVERY 21 DAYS
     Route: 065
  4. CARBOPLATIN. [Suspect]
     Active Substance: CARBOPLATIN
     Indication: BLADDER TRANSITIONAL CELL CARCINOMA
     Dosage: AUC 5 DAY 1 EVERY 21 DAYS
     Route: 065

REACTIONS (2)
  - Therapy partial responder [Unknown]
  - Metastases to meninges [Unknown]
